FAERS Safety Report 17687943 (Version 2)
Quarter: 2020Q2

REPORT INFORMATION
  Report Type: Report from Study
  Country: AU (occurrence: AU)
  Receive Date: 20200421
  Receipt Date: 20200519
  Transmission Date: 20200714
  Serious: Yes (Hospitalization)
  Sender: FDA-Public Use
  Company Number: AU-BAXTER-2020BAX007575

PATIENT
  Age: 57 Year
  Sex: Female

DRUGS (4)
  1. DOXIL [Suspect]
     Active Substance: DOXORUBICIN HYDROCHLORIDE
     Dosage: 1.4286 MG/M2
     Route: 042
     Dates: start: 20200206
  2. DOXIL [Suspect]
     Active Substance: DOXORUBICIN HYDROCHLORIDE
     Indication: TRIPLE NEGATIVE BREAST CANCER
     Dosage: 50 MG / 25 ML
     Route: 042
     Dates: start: 20200206
  3. DOXIL [Suspect]
     Active Substance: DOXORUBICIN HYDROCHLORIDE
     Route: 042
     Dates: start: 20200305
  4. DOXIL [Suspect]
     Active Substance: DOXORUBICIN HYDROCHLORIDE
     Dosage: 20 MG/10 ML
     Route: 042
     Dates: start: 20200206

REACTIONS (2)
  - Mucosal inflammation [Recovered/Resolved]
  - Lower respiratory tract infection viral [Recovered/Resolved]

NARRATIVE: CASE EVENT DATE: 20200319
